FAERS Safety Report 6877571-9 (Version None)
Quarter: 2010Q3

REPORT INFORMATION
  Report Type: 
  Country: None (occurrence: None)
  Receive Date: 20100727
  Receipt Date: 20100330
  Transmission Date: 20110219
  Serious: No
  Sender: FDA-Public Use
  Company Number: US-ABBOTT-10P-163-0630267-00

PATIENT
  Sex: Female
  Weight: 178.42 kg

DRUGS (4)
  1. SYNTHROID [Suspect]
     Indication: THYROIDECTOMY
     Dosage: 300MCG SIX DAYS A WEEK AND 150MCG ONE DAY WEEK
     Dates: start: 20090101, end: 20100126
  2. SYNTHROID [Suspect]
     Indication: NEOPLASM MALIGNANT
  3. SYNTHROID [Suspect]
     Dates: start: 20100126
  4. METFORMIN HCL [Concomitant]
     Indication: TYPE 2 DIABETES MELLITUS
     Dates: start: 20090501

REACTIONS (3)
  - INCREASED APPETITE [None]
  - NASOPHARYNGITIS [None]
  - WEIGHT INCREASED [None]
